FAERS Safety Report 14020271 (Version 1)
Quarter: 2017Q3

REPORT INFORMATION
  Report Type: Spontaneous
  Country: US (occurrence: US)
  Receive Date: 20170928
  Receipt Date: 20170928
  Transmission Date: 20171128
  Serious: No
  Sender: FDA-Public Use
  Company Number: US-DRREDDYS-USA/USA/17/0089134

PATIENT
  Sex: Female

DRUGS (4)
  1. LINCOCIN [Concomitant]
     Active Substance: LINCOMYCIN
     Indication: ACUTE SINUSITIS
     Route: 030
     Dates: start: 20160229, end: 20160229
  2. AUGMENTIN [Suspect]
     Active Substance: AMOXICILLIN\CLAVULANATE POTASSIUM
     Indication: PRODUCT USED FOR UNKNOWN INDICATION
     Route: 065
  3. AMOXICILLIN. [Suspect]
     Active Substance: AMOXICILLIN
     Indication: PRODUCT USED FOR UNKNOWN INDICATION
     Route: 065
  4. KENALOG [Concomitant]
     Active Substance: TRIAMCINOLONE ACETONIDE
     Indication: ACUTE SINUSITIS
     Route: 030
     Dates: start: 20160229, end: 20160229

REACTIONS (1)
  - Drug hypersensitivity [Unknown]
